FAERS Safety Report 7581427-6 (Version None)
Quarter: 2011Q2

REPORT INFORMATION
  Report Type: 
  Country: None (occurrence: None)
  Receive Date: 20110629
  Receipt Date: 20110615
  Transmission Date: 20111010
  Serious: Yes (Hospitalization)
  Sender: FDA-Public Use
  Company Number: PHHY2011FR53304

PATIENT
  Sex: Male
  Weight: 90 kg

DRUGS (5)
  1. VALSARTAN AND HYDROCHLOROTHIAZIDE [Suspect]
     Indication: HYPERTENSION
     Dosage: 1 DF, QD
     Dates: start: 20050505
  2. METFORMIN HCL [Concomitant]
     Dosage: 2 DF, QD
     Dates: start: 20110118
  3. DIAMICRON [Concomitant]
     Dosage: 3 DF, QD
     Dates: start: 20100712
  4. METFORMIN HCL [Concomitant]
     Dosage: 3 DF, QD
     Dates: start: 20100712
  5. DIAMICRON [Concomitant]
     Dosage: 2 DF, QD
     Dates: start: 20110118

REACTIONS (1)
  - HEPATIC CIRRHOSIS [None]
